FAERS Safety Report 19650010 (Version 2)
Quarter: 2021Q3

REPORT INFORMATION
  Report Type: Report from Study
  Country: GB (occurrence: GB)
  Receive Date: 20210803
  Receipt Date: 20210817
  Transmission Date: 20211014
  Serious: Yes (Other)
  Sender: FDA-Public Use
  Company Number: NVSC2021GB167570

PATIENT
  Sex: Female

DRUGS (1)
  1. HYRIMOZ [Suspect]
     Active Substance: ADALIMUMAB-ADAZ
     Indication: ANKYLOSING SPONDYLITIS
     Dosage: 40MG/0.8ML ,Q2W(FORNIGHTLY)
     Route: 058
     Dates: start: 20210426

REACTIONS (4)
  - Stress [Unknown]
  - Ankylosing spondylitis [Unknown]
  - Product dose omission issue [Unknown]
  - Gait disturbance [Unknown]
